FAERS Safety Report 19761503 (Version 4)
Quarter: 2022Q2

REPORT INFORMATION
  Report Type: Spontaneous
  Country: GB (occurrence: GB)
  Receive Date: 20210830
  Receipt Date: 20220602
  Transmission Date: 20220721
  Serious: Yes (Other)
  Sender: FDA-Public Use
  Company Number: XI-MHRA-ADR 25790140

PATIENT
  Age: 37 Year
  Sex: Female
  Weight: 52 kg

DRUGS (12)
  1. IBUPROFEN [Suspect]
     Active Substance: IBUPROFEN
     Indication: Product used for unknown indication
     Dosage: UNK
     Route: 065
  2. DESOGESTREL [Concomitant]
     Active Substance: DESOGESTREL
     Indication: Hormone level abnormal
     Dosage: UNK
     Route: 065
  3. CITALOPRAM [Concomitant]
     Active Substance: CITALOPRAM HYDROBROMIDE
     Indication: Obsessive-compulsive disorder
     Dosage: 40 MILLIGRAM
     Route: 065
  4. NIFEDIPINE [Concomitant]
     Active Substance: NIFEDIPINE
     Indication: Product used for unknown indication
     Dosage: UNK
     Route: 065
  5. Covid-19 vaccine [Concomitant]
     Indication: COVID-19 immunisation
     Dosage: UNK(DOSE 2)
     Route: 065
     Dates: start: 20210711, end: 20210711
  6. CREATINE [Concomitant]
     Active Substance: CREATINE
     Indication: Product used for unknown indication
     Dosage: UNK
     Route: 065
  7. DOXYCYCLINE [Concomitant]
     Active Substance: DOXYCYCLINE
     Indication: Acne
     Dosage: UNK
     Route: 065
  8. FERROUS FUMARATE [Concomitant]
     Active Substance: FERROUS FUMARATE
     Indication: Product used for unknown indication
     Dosage: 1 DOSAGE FORM, AS NECESSARY
     Route: 065
  9. NIFEDIPINE [Concomitant]
     Active Substance: NIFEDIPINE
     Indication: Raynaud^s phenomenon
     Dosage: UNK
     Route: 065
  10. OMEGA-3 FATTY ACIDS [Concomitant]
     Active Substance: OMEGA-3 FATTY ACIDS
     Indication: Product used for unknown indication
     Dosage: UNK
     Route: 065
  11. PROMETHAZINE [Concomitant]
     Active Substance: PROMETHAZINE HYDROCHLORIDE
     Indication: Product used for unknown indication
     Dosage: UNK
     Route: 065
  12. THYROXINE [Concomitant]
     Active Substance: LEVOTHYROXINE
     Indication: Hormone level abnormal
     Dosage: 20 MILLIGRAM
     Route: 065

REACTIONS (1)
  - Nausea [Recovered/Resolved]
